FAERS Safety Report 6577525-6 (Version None)
Quarter: 2010Q1

REPORT INFORMATION
  Report Type: 
  Country: None (occurrence: None)
  Receive Date: 20100211
  Receipt Date: 20100209
  Transmission Date: 20100710
  Serious: Yes (Other)
  Sender: FDA-Public Use
  Company Number: US-ASTRAZENECA-2006UW06860

PATIENT
  Age: 42 Year
  Sex: Male
  Weight: 113.4 kg

DRUGS (20)
  1. SEROQUEL [Suspect]
     Indication: DEPRESSION
     Dosage: APPROX. 25 MG TO 100MG PER DAY
     Route: 048
     Dates: start: 19990101, end: 20041101
  2. SEROQUEL [Suspect]
     Indication: BIPOLAR DISORDER
     Dosage: APPROX. 25 MG TO 100MG PER DAY
     Route: 048
     Dates: start: 19990101, end: 20041101
  3. SEROQUEL [Suspect]
     Indication: ANXIETY
     Dosage: APPROX. 25 MG TO 100MG PER DAY
     Route: 048
     Dates: start: 19990101, end: 20041101
  4. SEROQUEL [Suspect]
     Indication: MOOD SWINGS
     Dosage: APPROX. 25 MG TO 100MG PER DAY
     Route: 048
     Dates: start: 19990101, end: 20041101
  5. SEROQUEL [Suspect]
     Dosage: 25 MG TWICE A DAY, 25 MG THREE TIMES A DAY, 25 MG FOUR TIMES A DAY, 100 MG IN EVENING
     Route: 048
     Dates: start: 19990701
  6. SEROQUEL [Suspect]
     Dosage: 25 MG TWICE A DAY, 25 MG THREE TIMES A DAY, 25 MG FOUR TIMES A DAY, 100 MG IN EVENING
     Route: 048
     Dates: start: 19990701
  7. SEROQUEL [Suspect]
     Dosage: 25 MG TWICE A DAY, 25 MG THREE TIMES A DAY, 25 MG FOUR TIMES A DAY, 100 MG IN EVENING
     Route: 048
     Dates: start: 19990701
  8. SEROQUEL [Suspect]
     Dosage: 25 MG TWICE A DAY, 25 MG THREE TIMES A DAY, 25 MG FOUR TIMES A DAY, 100 MG IN EVENING
     Route: 048
     Dates: start: 19990701
  9. SEROQUEL [Suspect]
     Dosage: 25-100 MG
     Route: 048
     Dates: start: 19950101, end: 20041101
  10. SEROQUEL [Suspect]
     Dosage: 25-100 MG
     Route: 048
     Dates: start: 19950101, end: 20041101
  11. SEROQUEL [Suspect]
     Dosage: 25-100 MG
     Route: 048
     Dates: start: 19950101, end: 20041101
  12. SEROQUEL [Suspect]
     Dosage: 25-100 MG
     Route: 048
     Dates: start: 19950101, end: 20041101
  13. ZYPREXA [Suspect]
     Indication: DEPRESSION
     Dates: start: 20050101
  14. DEPAKOTE [Concomitant]
     Dosage: 500 MG TAKE 1 TABLET TWICE A DAY, TAKE 2 IN MORNING AND TWO AT BEDTIME
     Dates: start: 19990701
  15. WELLBUTRIN SR [Concomitant]
     Dosage: 150-300 MG
     Dates: start: 19990701
  16. PROPRANOLOL [Concomitant]
     Dosage: 10 MG TWICE A DAY, THREE TIMES A DAY
     Dates: start: 19990618
  17. CHLORDIAZEPOXIDE [Concomitant]
     Dosage: 25 MG THREE TIMES A DAY AS NEEDED, TAKE 2 CAPSULES EVERY 8 HOURS AS NEEDED
     Dates: start: 20050107
  18. GLIPIZIDE [Concomitant]
     Dosage: 5 MG TAKE ONE-HALF TABLET DAILY
     Dates: start: 20050120
  19. CAMPRAL [Concomitant]
     Dosage: 333 MG TAKE 2 TABLETS THREE TIMES A DAY
     Dates: start: 20050301
  20. LUNESTA [Concomitant]
     Dates: start: 20051025

REACTIONS (11)
  - ALCOHOLIC PANCREATITIS [None]
  - BLOOD CHOLESTEROL INCREASED [None]
  - BLOOD GLUCOSE ABNORMAL [None]
  - BLOOD GLUCOSE INCREASED [None]
  - BLOOD TRIGLYCERIDES INCREASED [None]
  - HYPERGLYCAEMIA [None]
  - HYPERLIPIDAEMIA [None]
  - OBESITY [None]
  - PANCREATITIS [None]
  - SUICIDE ATTEMPT [None]
  - TYPE 2 DIABETES MELLITUS [None]
